FAERS Safety Report 8128912-6 (Version None)
Quarter: 2012Q1

REPORT INFORMATION
  Report Type: 
  Country: None (occurrence: None)
  Receive Date: 20120210
  Receipt Date: 20110611
  Transmission Date: 20120608
  Serious: No
  Sender: FDA-Public Use
  Company Number: US-BRISTOL-MYERS SQUIBB COMPANY-15741515

PATIENT
  Age: 77 Year
  Sex: Female

DRUGS (7)
  1. SIMVASTATIN [Concomitant]
  2. ORENCIA [Suspect]
     Indication: RHEUMATOID ARTHRITIS
     Dosage: NO OF INF:1
     Route: 042
     Dates: start: 20110505
  3. APAP TAB [Concomitant]
  4. ASPIRIN [Concomitant]
     Dosage: 1 DF^ 5 UNIT NOS
  5. TRAZODONE HCL [Concomitant]
  6. SYNTHROID [Concomitant]
  7. PREDNISONE TAB [Concomitant]

REACTIONS (6)
  - NAUSEA [None]
  - CHILLS [None]
  - FLUSHING [None]
  - VOMITING [None]
  - HEART RATE INCREASED [None]
  - HEADACHE [None]
